FAERS Safety Report 8336962-X (Version None)
Quarter: 2012Q2

REPORT INFORMATION
  Report Type: 
  Country: None (occurrence: None)
  Receive Date: 20120501
  Receipt Date: 20120423
  Transmission Date: 20120825
  Serious: Yes (Death)
  Sender: FDA-Public Use
  Company Number: AUR-APL-2012-01811

PATIENT
  Age: 66 Year
  Sex: Male

DRUGS (3)
  1. COTRIM FORTE (BACTRIM) [Concomitant]
  2. TORSEMIDE [Concomitant]
  3. METFORMIN HCL [Suspect]
     Indication: TYPE 2 DIABETES MELLITUS
     Dosage: (2000 MG, 1 D),ORAL
     Route: 048

REACTIONS (3)
  - URINARY TRACT INFECTION [None]
  - LACTIC ACIDOSIS [None]
  - RENAL FAILURE ACUTE [None]
